FAERS Safety Report 21010831 (Version 1)
Quarter: 2022Q2

REPORT INFORMATION
  Report Type: Spontaneous
  Country: US (occurrence: None)
  Receive Date: 20220624
  Receipt Date: 20220624
  Transmission Date: 20220720
  Serious: No
  Sender: FDA-Public Use
  Company Number: None

PATIENT
  Age: 79 Year
  Sex: Male

DRUGS (2)
  1. REVLIMID [Suspect]
     Active Substance: LENALIDOMIDE
     Indication: Diffuse large B-cell lymphoma
     Dosage: 10MG QD ORAL
     Route: 048
     Dates: start: 20220207, end: 20220624
  2. REVLIMID [Suspect]
     Active Substance: LENALIDOMIDE
     Indication: Angiocentric lymphoma

REACTIONS (5)
  - Depression [None]
  - Fatigue [None]
  - Decreased appetite [None]
  - Fatigue [None]
  - Therapy interrupted [None]

NARRATIVE: CASE EVENT DATE: 20220608
